FAERS Safety Report 10544293 (Version 2)
Quarter: 2015Q1

REPORT INFORMATION
  Report Type: Spontaneous
  Country: US (occurrence: None)
  Receive Date: 20141016
  Receipt Date: 20150126
  Transmission Date: 20150720
  Serious: Yes (Other)
  Sender: FDA-Public Use
  Company Number: ALCN2014US005247

PATIENT
  Age: 67 Year
  Sex: Female

DRUGS (3)
  1. SIMBRINZA [Suspect]
     Active Substance: BRIMONIDINE TARTRATE\BRINZOLAMIDE
     Indication: GLAUCOMA
     Dosage: 1GTT, BID, BOTH EYES - OPH
     Route: 047
     Dates: start: 20140601, end: 20140922
  2. LISINOPRIL. [Concomitant]
     Active Substance: LISINOPRIL
  3. LUMIGAN (BIMATOPROST) [Concomitant]

REACTIONS (2)
  - Dysgeusia [None]
  - Blood pressure increased [None]

NARRATIVE: CASE EVENT DATE: 20140615
